FAERS Safety Report 8462463-4 (Version None)
Quarter: 2012Q2

REPORT INFORMATION
  Report Type: 
  Country: None (occurrence: None)
  Receive Date: 20120625
  Receipt Date: 20120615
  Transmission Date: 20120825
  Serious: Yes (Hospitalization, Other)
  Sender: FDA-Public Use
  Company Number: US-ELI_LILLY_AND_COMPANY-US201104002998

PATIENT
  Sex: Female
  Weight: 55.782 kg

DRUGS (16)
  1. PSEUDOEPHEDRINE HCL [Concomitant]
     Dosage: 2 DF, QD PRN
  2. CALCIUM W/VITAMIN D NOS [Concomitant]
     Dosage: 1 DF, QD
  3. PRAVACHOL [Concomitant]
     Dosage: 0.5 DF, QD
  4. FORTEO [Suspect]
     Indication: OSTEOPOROSIS
     Dosage: 20 UG, QD
     Route: 065
     Dates: start: 20110401, end: 20110405
  5. FORTEO [Suspect]
     Dosage: 20 UG, QD
     Route: 065
  6. FORTEO [Suspect]
     Dosage: 20 UG, QD
     Route: 065
  7. CORTISONE ACETATE [Concomitant]
  8. PROAIR HFA [Concomitant]
     Dosage: 2 DF, EVERY 6 HOURS AS NEEDED
  9. FORTEO [Suspect]
     Dosage: 20 UG, QD
     Route: 065
     Dates: start: 20110411
  10. FORTEO [Suspect]
     Dosage: 20 UG, QD
     Route: 065
  11. FORTEO [Suspect]
     Dosage: 20 UG, QD
     Route: 065
  12. EXCEDRIN (MIGRAINE) [Concomitant]
     Dosage: 1 DF, UNK
  13. TYLENOL (CAPLET) [Concomitant]
     Dosage: UNK, 6 PER DAY
  14. SPIRIVA [Concomitant]
     Dosage: 1 DF, QD
  15. EVISTA [Suspect]
     Dosage: UNK, UNKNOWN
     Route: 065
  16. CLARITIN [Concomitant]
     Dosage: 1 DF, PRN

REACTIONS (18)
  - FALL [None]
  - VOMITING [None]
  - FATIGUE [None]
  - NAUSEA [None]
  - ABDOMINAL DISCOMFORT [None]
  - DIZZINESS [None]
  - MALAISE [None]
  - CONTUSION [None]
  - HEART RATE INCREASED [None]
  - INTENTIONAL DRUG MISUSE [None]
  - CHOLELITHIASIS [None]
  - FEMUR FRACTURE [None]
  - RETCHING [None]
  - BLOOD TRIGLYCERIDES INCREASED [None]
  - BLOOD CHOLESTEROL INCREASED [None]
  - HIP FRACTURE [None]
  - URINARY TRACT INFECTION [None]
  - BLOOD CALCIUM INCREASED [None]
